FAERS Safety Report 7275202-X (Version None)
Quarter: 2011Q1

REPORT INFORMATION
  Report Type: 
  Country: None (occurrence: None)
  Receive Date: 20110204
  Receipt Date: 20110125
  Transmission Date: 20110831
  Serious: Yes (Hospitalization)
  Sender: FDA-Public Use
  Company Number: PHHO2011DE01725

PATIENT
  Sex: Female

DRUGS (3)
  1. CARBAMAZEPINE [Suspect]
     Indication: TRIGEMINAL NEURALGIA
     Dosage: 800 MG, BID
     Route: 048
     Dates: start: 20060101, end: 20110124
  2. AMITRIPTYLINE HCL [Concomitant]
     Indication: TRIGEMINAL NEURALGIA
     Dosage: 50 - 0 - 75 MG
     Route: 048
     Dates: start: 20100501, end: 20110124
  3. FTY 720 [Suspect]
     Indication: MULTIPLE SCLEROSIS
     Dosage: 0.5 MG, QD
     Route: 048
     Dates: start: 20101109, end: 20110124

REACTIONS (2)
  - VERTIGO [None]
  - NYSTAGMUS [None]
